FAERS Safety Report 14055795 (Version 1)
Quarter: 2017Q4

REPORT INFORMATION
  Report Type: Other
  Country: CA (occurrence: CA)
  Receive Date: 20171006
  Receipt Date: 20171006
  Transmission Date: 20180321
  Serious: Yes (Other)
  Sender: FDA-Public Use
  Company Number: CA-APOTEX-2017AP019228

PATIENT
  Age: 39 Year
  Sex: Male

DRUGS (2)
  1. APO-PAROXETINE [Suspect]
     Active Substance: PAROXETINE
     Indication: PRODUCT USED FOR UNKNOWN INDICATION
     Dosage: 20 MG, QD
     Route: 065
  2. ZUCLOPENTHIXOL [Concomitant]
     Active Substance: ZUCLOPENTHIXOL
     Indication: PRODUCT USED FOR UNKNOWN INDICATION
     Dosage: UNK
     Route: 065

REACTIONS (8)
  - Asthenia [Recovered/Resolved]
  - Joint dislocation [Recovered/Resolved]
  - Limb discomfort [Recovered/Resolved]
  - Gait disturbance [Recovered/Resolved]
  - Spinal cord compression [Recovered/Resolved]
  - Dyskinesia [Recovered/Resolved]
  - Condition aggravated [Recovered/Resolved]
  - Facial asymmetry [Recovered/Resolved]
